FAERS Safety Report 4851781-4 (Version None)
Quarter: 2005Q4

REPORT INFORMATION
  Report Type: 
  Country: None (occurrence: None)
  Receive Date: 20051209
  Receipt Date: 20051124
  Transmission Date: 20060501
  Serious: Yes (Life-Threatening)
  Sender: FDA-Public Use
  Company Number: 12950

PATIENT
  Age: 55 Year
  Sex: Female

DRUGS (4)
  1. CARBOPLATIN [Suspect]
     Dosage: 410 MG FREQ IV
     Route: 042
     Dates: start: 20050325
  2. GEMCITABINE [Suspect]
     Dosage: 1 G FREQ IV
     Route: 042
     Dates: start: 20050325
  3. DEXAMETHASONE [Concomitant]
  4. TROPISETRON HYDROCHLORIDE [Concomitant]

REACTIONS (8)
  - ANAPHYLACTIC REACTION [None]
  - CHEST PAIN [None]
  - DOCUMENTED HYPERSENSITIVITY TO ADMINISTERED DRUG [None]
  - INFUSION RELATED REACTION [None]
  - PARAESTHESIA [None]
  - RASH [None]
  - SWOLLEN TONGUE [None]
  - TINNITUS [None]
